FAERS Safety Report 5078115-7 (Version None)
Quarter: 2006Q3

REPORT INFORMATION
  Report Type: 
  Country: None (occurrence: None)
  Receive Date: 20060720
  Receipt Date: 20060131
  Transmission Date: 20061208
  Serious: Yes (Life-Threatening)
  Sender: FDA-Public Use
  Company Number: 2006MP000110

PATIENT
  Age: 61 Year
  Sex: Male

DRUGS (10)
  1. AGGRASTAT [Suspect]
     Indication: CORONARY ANGIOPLASTY
     Dosage: IV
     Route: 042
     Dates: start: 20051110, end: 20051118
  2. AGGRASTAT [Suspect]
     Indication: CORONARY ANGIOPLASTY
     Dosage: IV
     Route: 042
     Dates: start: 20051122, end: 20051122
  3. HEPARIN [Suspect]
     Indication: CORONARY ANGIOPLASTY
     Dosage: IV
     Route: 042
     Dates: start: 20051110, end: 20051118
  4. HEPARIN [Suspect]
     Indication: CORONARY ANGIOPLASTY
     Dosage: IV
     Route: 042
     Dates: start: 20051122, end: 20051122
  5. ASPIRIN [Concomitant]
  6. ASPIRIN LYSINE [Concomitant]
  7. ATENOLOL [Concomitant]
  8. NITROGLYCERIN [Concomitant]
  9. PANTOPRAZOLE SODIUM [Concomitant]
  10. RAMIPRIL [Concomitant]

REACTIONS (4)
  - ANAEMIA [None]
  - HAEMATURIA [None]
  - POST PROCEDURAL HAEMORRHAGE [None]
  - THROMBOCYTOPENIA [None]
